FAERS Safety Report 10101700 (Version 2)
Quarter: 2014Q2

REPORT INFORMATION
  Report Type: Report from Study
  Country: SK (occurrence: SK)
  Receive Date: 20140424
  Receipt Date: 20140424
  Transmission Date: 20141212
  Serious: Yes (Hospitalization)
  Sender: FDA-Public Use
  Company Number: SK-ASTRAZENECA-2014SE01640

PATIENT
  Age: 29759 Day
  Sex: Female

DRUGS (11)
  1. AZD6140 [Suspect]
     Indication: CORONARY ARTERY DISEASE
     Route: 048
     Dates: start: 20120613, end: 20140102
  2. ANOPYRIN [Suspect]
     Route: 048
     Dates: end: 20140102
  3. ANOPYRIN [Suspect]
     Route: 048
     Dates: start: 20140109, end: 20140130
  4. MILURIT [Concomitant]
     Indication: GOUT
     Route: 048
  5. LIPANTHYL [Concomitant]
     Indication: HYPERCHOLESTEROLAEMIA
     Route: 048
     Dates: start: 20130606
  6. GENTIAN TINCTURE [Concomitant]
     Indication: MUCOCUTANEOUS CANDIDIASIS
     Route: 050
     Dates: start: 20120806
  7. FURON [Concomitant]
     Indication: HYPERTENSION
     Route: 048
  8. KETOSTERIL [Concomitant]
     Indication: RENAL FAILURE CHRONIC
     Route: 048
     Dates: start: 20131010
  9. BISOMERCK [Concomitant]
     Indication: CORONARY ARTERY DISEASE
     Route: 048
  10. MICARDIS [Concomitant]
     Indication: HYPERTENSION
     Route: 048
  11. EUPHYLLIN [Concomitant]
     Indication: BRONCHITIS
     Route: 048
     Dates: start: 20120802, end: 20140103

REACTIONS (1)
  - Nephrolithiasis [Recovered/Resolved]
